FAERS Safety Report 20808801 (Version 1)
Quarter: 2022Q2

REPORT INFORMATION
  Report Type: Spontaneous
  Country: US (occurrence: US)
  Receive Date: 20220510
  Receipt Date: 20220510
  Transmission Date: 20220721
  Serious: No
  Sender: FDA-Public Use
  Company Number: US-BEH-2022145167

PATIENT
  Sex: Female

DRUGS (1)
  1. HIZENTRA [Suspect]
     Active Substance: HUMAN IMMUNOGLOBULIN G
     Indication: Immunodeficiency common variable
     Dosage: 15 GRAM, QOW
     Route: 058
     Dates: start: 202102

REACTIONS (9)
  - Pruritus [Unknown]
  - Pruritus [Recovering/Resolving]
  - Injection site erythema [Unknown]
  - Headache [Recovered/Resolved]
  - Injection site haemorrhage [Unknown]
  - No adverse event [Unknown]
  - Product availability issue [Unknown]
  - Device difficult to use [Unknown]
  - Product use complaint [Unknown]
